FAERS Safety Report 25942914 (Version 1)
Quarter: 2025Q4

REPORT INFORMATION
  Report Type: Spontaneous
  Country: EU (occurrence: EU)
  Receive Date: 20251021
  Receipt Date: 20251021
  Transmission Date: 20260118
  Serious: Yes (Hospitalization, Other)
  Sender: NATCO PHARMA
  Company Number: EU-NATCO-000042

PATIENT
  Age: 45 Year
  Sex: Male

DRUGS (1)
  1. DISULFIRAM [Suspect]
     Active Substance: DISULFIRAM
     Indication: Alcohol use disorder
     Route: 065

REACTIONS (2)
  - Vertebrobasilar stroke [Recovered/Resolved]
  - Labelled drug-alcohol interaction issue [Recovered/Resolved]
